FAERS Safety Report 10086991 (Version 1)
Quarter: 2014Q2

REPORT INFORMATION
  Report Type: Spontaneous
  Country: GB (occurrence: GB)
  Receive Date: 20140418
  Receipt Date: 20140418
  Transmission Date: 20141212
  Serious: Yes (Hospitalization, Other)
  Sender: FDA-Public Use
  Company Number: GB-PFIZER INC-2014107344

PATIENT
  Age: 63 Year
  Sex: Male
  Weight: 95.4 kg

DRUGS (14)
  1. RAMIPRIL [Suspect]
     Indication: HYPERTENSION
     Dosage: 5 MG, UNK
     Route: 065
  2. RAMIPRIL [Suspect]
     Dosage: 15 MG, UNK
     Route: 048
     Dates: start: 20140327, end: 20140328
  3. ASPIRIN [Concomitant]
     Dosage: UNK
     Route: 065
  4. CEFUROXIME [Concomitant]
     Dosage: UNK
     Route: 065
  5. CLOPIDOGREL [Concomitant]
     Dosage: UNK
     Route: 065
  6. DALTEPARIN [Concomitant]
     Dosage: UNK
     Route: 065
  7. GENTAMICIN [Concomitant]
     Dosage: UNK
     Route: 065
  8. LANSOPRAZOLE [Concomitant]
     Dosage: 15 MG, UNK
     Route: 065
  9. METOCLOPRAMIDE [Concomitant]
     Dosage: UNK
     Route: 065
  10. MORPHINE [Concomitant]
     Dosage: UNK
     Route: 065
  11. ONDANSETRON [Concomitant]
     Dosage: UNK
     Route: 065
  12. PARACETAMOL [Concomitant]
     Dosage: UNK
     Route: 065
  13. PREGABALIN [Concomitant]
     Dosage: UNK
     Route: 065
  14. ACIDEX [Concomitant]
     Dosage: UNK
     Route: 065

REACTIONS (4)
  - Renal failure acute [Unknown]
  - Arthropathy [Unknown]
  - Prescribed overdose [Unknown]
  - Oesophagitis haemorrhagic [Recovering/Resolving]
